FAERS Safety Report 11743348 (Version 1)
Quarter: 2015Q4

REPORT INFORMATION
  Report Type: Spontaneous
  Country: TR (occurrence: TR)
  Receive Date: 20151116
  Receipt Date: 20151116
  Transmission Date: 20160304
  Serious: Yes (Other)
  Sender: FDA-Public Use
  Company Number: TR-JNJFOC-20151001438

PATIENT
  Age: 50 Year
  Sex: Female

DRUGS (2)
  1. XEPLION [Suspect]
     Active Substance: PALIPERIDONE PALMITATE
     Indication: SCHIZOPHRENIA, PARANOID TYPE
     Dosage: INITIATED IN THE EVENING OF 14-SEP-2015
     Route: 030
     Dates: start: 20150914, end: 20150914
  2. INVEGA [Suspect]
     Active Substance: PALIPERIDONE
     Indication: SCHIZOPHRENIA, PARANOID TYPE
     Dosage: INITIATED IN THE MORNING OF 14-SEP-2015
     Route: 048
     Dates: start: 20150914, end: 20150915

REACTIONS (7)
  - Laboratory test abnormal [Recovered/Resolved]
  - C-reactive protein increased [Recovered/Resolved]
  - Liver function test abnormal [Recovered/Resolved]
  - Hypersensitivity vasculitis [Recovered/Resolved]
  - Renal function test abnormal [Recovered/Resolved]
  - Red blood cell sedimentation rate increased [Recovered/Resolved]
  - Rash [Recovered/Resolved]

NARRATIVE: CASE EVENT DATE: 20150915
